FAERS Safety Report 18507786 (Version 1)
Quarter: 2020Q4

REPORT INFORMATION
  Report Type: Spontaneous
  Country: DE (occurrence: DE)
  Receive Date: 20201116
  Receipt Date: 20201116
  Transmission Date: 20210114
  Serious: Yes (Hospitalization, Other)
  Sender: FDA-Public Use
  Company Number: DE-BAUSCH-BL-2020-033253

PATIENT
  Sex: Female
  Weight: 68 kg

DRUGS (1)
  1. DEXAMETHASONE. [Suspect]
     Active Substance: DEXAMETHASONE
     Indication: PRODUCT USED FOR UNKNOWN INDICATION
     Route: 065

REACTIONS (8)
  - General physical health deterioration [Recovered/Resolved]
  - Pneumocystis jirovecii pneumonia [Unknown]
  - Pyrexia [Recovered/Resolved]
  - Lung infiltration [Unknown]
  - Cough [Recovered/Resolved]
  - Dyspnoea [Recovered/Resolved]
  - Clostridium difficile infection [Unknown]
  - Glutamate dehydrogenase level abnormal [Unknown]

NARRATIVE: CASE EVENT DATE: 20200916
